FAERS Safety Report 24355203 (Version 1)
Quarter: 2024Q3

REPORT INFORMATION
  Report Type: Report from Study
  Country: US (occurrence: US)
  Receive Date: 20240924
  Receipt Date: 20240924
  Transmission Date: 20241017
  Serious: Yes (Hospitalization, Other)
  Sender: ABBVIE
  Company Number: US-ABBVIE-5931332

PATIENT
  Age: 36 Year
  Sex: Female

DRUGS (1)
  1. SKYRIZI [Suspect]
     Active Substance: RISANKIZUMAB-RZAA
     Indication: Colitis ulcerative
     Dosage: END DATE: 2024
     Route: 042
     Dates: start: 20240729

REACTIONS (1)
  - Colectomy [Recovering/Resolving]

NARRATIVE: CASE EVENT DATE: 20240909
